FAERS Safety Report 4945825-9 (Version None)
Quarter: 2006Q1

REPORT INFORMATION
  Report Type: 
  Country: None (occurrence: None)
  Receive Date: 20060117
  Receipt Date: 20050222
  Transmission Date: 20060701
  Serious: Yes (Hospitalization)
  Sender: FDA-Public Use
  Company Number: A03200500525

PATIENT
  Age: 78 Year
  Sex: Male
  Weight: 77.1115 kg

DRUGS (3)
  1. PLAVIX [Suspect]
     Indication: ISCHAEMIC STROKE
     Dosage: 75 MG QD - ORAL
     Route: 048
     Dates: start: 20031001
  2. ASPIRIN - ACETYLSALICYLIC ACID - TABLET - 81 MG [Suspect]
     Indication: ISCHAEMIC STROKE
     Dosage: 81 MG QD - ORAL
     Route: 048
     Dates: start: 20031001, end: 20040801
  3. AMLODIPINE BESYLATE [Concomitant]

REACTIONS (2)
  - GASTROINTESTINAL ULCER HAEMORRHAGE [None]
  - HAEMOGLOBIN DECREASED [None]
